FAERS Safety Report 7583096-8 (Version None)
Quarter: 2011Q2

REPORT INFORMATION
  Report Type: 
  Country: None (occurrence: None)
  Receive Date: 20110623
  Receipt Date: 20110607
  Transmission Date: 20111010
  Serious: Yes (Other)
  Sender: FDA-Public Use
  Company Number: WAES 1104USA03346

PATIENT
  Age: 69 Year
  Sex: Female

DRUGS (13)
  1. PLACEBO [Suspect]
     Indication: ACUTE CORONARY SYNDROME
     Dosage: PO
     Route: 048
     Dates: start: 20061214
  2. GLAZIDE [Concomitant]
  3. PRAZOSIN HCL [Concomitant]
  4. LERCANIDIPINE [Concomitant]
  5. HYDROCHLOROTHIAZIDE (+) OLMESARTAN MEDOX [Concomitant]
  6. METFORMIN HCL [Concomitant]
  7. METOPROLOL TARTRATE [Concomitant]
  8. PLACEBO [Suspect]
     Indication: ACUTE CORONARY SYNDROME
     Dosage: PO
     Route: 048
     Dates: start: 20061214
  9. PLAVIX [Concomitant]
  10. ASPIRIN [Concomitant]
  11. VYTORIN [Suspect]
     Indication: ACUTE CORONARY SYNDROME
     Dosage: 10-40 MG/DAILY PO
     Route: 048
     Dates: start: 20061214
  12. LERCANIDIPINE [Concomitant]
  13. COVERSYL (PERINDOPRIL ARGININE) [Concomitant]

REACTIONS (3)
  - DUODENAL POLYP [None]
  - COLONIC POLYP [None]
  - BASAL CELL CARCINOMA [None]
